FAERS Safety Report 9352960 (Version 1)
Quarter: 2013Q2

REPORT INFORMATION
  Report Type: Spontaneous
  Country: US (occurrence: None)
  Receive Date: 20130614
  Receipt Date: 20130614
  Transmission Date: 20140414
  Serious: Yes (Hospitalization)
  Sender: FDA-Public Use
  Company Number: None

PATIENT
  Age: 19 Year
  Sex: Male
  Weight: 72.58 kg

DRUGS (1)
  1. EXJADE [Suspect]
     Route: 048
     Dates: start: 200907

REACTIONS (1)
  - Sickle cell anaemia with crisis [None]
